FAERS Safety Report 4312804-4 (Version None)
Quarter: 2004Q1

REPORT INFORMATION
  Report Type: 
  Country: None (occurrence: None)
  Receive Date: 20040304
  Receipt Date: 20040218
  Transmission Date: 20041129
  Serious: Yes (Other)
  Sender: FDA-Public Use
  Company Number: MYAM000001

PATIENT
  Age: 33 Year
  Sex: Female

DRUGS (5)
  1. MYAMBUTOL [Suspect]
     Indication: LYMPH NODE TUBERCULOSIS
     Dosage: 750 MG/DAY ORAL
     Route: 048
     Dates: start: 20031230, end: 20040130
  2. ISONIAZID [Concomitant]
  3. RIMACIANE (RIFAMPICIN) [Concomitant]
  4. PYRAZINAMIDE [Concomitant]
  5. PYDOXAL (PYRIDOXAL PHOSPHATE) [Concomitant]

REACTIONS (5)
  - ALANINE AMINOTRANSFERASE INCREASED [None]
  - ASPARTATE AMINOTRANSFERASE INCREASED [None]
  - BLOOD LACTATE DEHYDROGENASE INCREASED [None]
  - LIVER DISORDER [None]
  - MALAISE [None]
